FAERS Safety Report 8563468-5 (Version None)
Quarter: 2012Q3

REPORT INFORMATION
  Report Type: 
  Country: None (occurrence: None)
  Receive Date: 20120802
  Receipt Date: 20120730
  Transmission Date: 20120928
  Serious: Yes (Other)
  Sender: FDA-Public Use
  Company Number: PL-ROCHE-1067658

PATIENT
  Sex: Female
  Weight: 58 kg

DRUGS (7)
  1. HEVIRAN [Concomitant]
  2. VINCRISTINE [Suspect]
     Indication: LYMPHOMA
     Dates: start: 20110622, end: 20111027
  3. RITUXIMAB [Suspect]
     Indication: DIFFUSE LARGE B-CELL LYMPHOMA
     Route: 042
     Dates: start: 20110622, end: 20111027
  4. PREDNISONE [Suspect]
     Indication: LYMPHOMA
     Route: 048
     Dates: start: 20110622, end: 20111027
  5. CYCLOPHOSPHAMIDE [Suspect]
     Indication: LYMPHOMA
     Route: 042
     Dates: start: 20110622, end: 20111027
  6. DOXORUBICIN HYDROCHLORIDE [Suspect]
     Indication: LYMPHOMA
     Dates: start: 20110622, end: 20111027
  7. TAMOXIFEN CITRATE [Concomitant]

REACTIONS (12)
  - NAUSEA [None]
  - BETA 2 MICROGLOBULIN INCREASED [None]
  - IRON DEFICIENCY [None]
  - LEUKOPENIA [None]
  - ANAEMIA [None]
  - VOMITING [None]
  - NEPHROPATHY TOXIC [None]
  - VITAMIN B12 INCREASED [None]
  - FOLATE DEFICIENCY [None]
  - RETROPERITONEAL MASS [None]
  - HERPES ZOSTER [None]
  - ASTHENIA [None]
